FAERS Safety Report 19592860 (Version 1)
Quarter: 2021Q3

REPORT INFORMATION
  Report Type: Spontaneous
  Country: US (occurrence: US)
  Receive Date: 20210722
  Receipt Date: 20210722
  Transmission Date: 20211014
  Serious: Yes (Hospitalization)
  Sender: FDA-Public Use
  Company Number: None

PATIENT
  Age: 45 Year
  Sex: Female
  Weight: 75 kg

DRUGS (1)
  1. CASIRIVIMAB/IMDEVIMAB [Suspect]
     Active Substance: CASIRIVIMAB\IMDEVIMAB
     Route: 042

REACTIONS (7)
  - Movement disorder [None]
  - Pruritus [None]
  - Hyperaesthesia [None]
  - Dizziness [None]
  - Paranoia [None]
  - Nervousness [None]
  - Post procedural complication [None]

NARRATIVE: CASE EVENT DATE: 20210721
